FAERS Safety Report 4933904-1 (Version None)
Quarter: 2006Q1

REPORT INFORMATION
  Report Type: 
  Country: None (occurrence: None)
  Receive Date: 20060301
  Receipt Date: 20060222
  Transmission Date: 20060701
  Serious: Yes (Hospitalization, Other)
  Sender: FDA-Public Use
  Company Number: 2006026318

PATIENT
  Age: 36 Year
  Sex: Male

DRUGS (3)
  1. NEURONTIN [Suspect]
     Indication: MOOD SWINGS
     Dosage: 500 MG (250 MG, 2 IN 1D)
  2. VIAGRA [Suspect]
     Indication: ERECTILE DYSFUNCTION
     Dosage: 50 MG (50 MG, 1 IN 1 D),
     Dates: start: 20050101
  3. ABILIFY [Concomitant]

REACTIONS (4)
  - BIPOLAR DISORDER [None]
  - CONDITION AGGRAVATED [None]
  - DRUG INEFFECTIVE [None]
  - ERECTILE DYSFUNCTION [None]
